FAERS Safety Report 10077450 (Version 2)
Quarter: 2014Q2

REPORT INFORMATION
  Report Type: Spontaneous
  Country: US (occurrence: US)
  Receive Date: 20140414
  Receipt Date: 20140414
  Transmission Date: 20141212
  Serious: No
  Sender: FDA-Public Use
  Company Number: US-BANPHARM-20131536

PATIENT
  Age: 73 Year
  Sex: Female

DRUGS (9)
  1. ALEVE LIQUID GELS 220 MG [Suspect]
     Indication: PAIN
     Dosage: 1 DF, ONCE DAILY,
     Route: 048
     Dates: start: 20130723, end: 20130723
  2. LISINIPRIL [Concomitant]
  3. NORVASC [Concomitant]
  4. TOPROL [Concomitant]
  5. CYMBALTA [Concomitant]
  6. SEROQUEL [Concomitant]
  7. PREMERIN [Concomitant]
  8. TEMAZEPAN [Concomitant]
  9. 81 MG ASPIRIN [Concomitant]

REACTIONS (1)
  - Nausea [Recovered/Resolved]
